FAERS Safety Report 17849386 (Version 45)
Quarter: 2025Q3

REPORT INFORMATION
  Report Type: Spontaneous
  Country: GB (occurrence: GB)
  Receive Date: 20200602
  Receipt Date: 20250926
  Transmission Date: 20251020
  Serious: Yes (Death, Life-Threatening, Hospitalization, Disabling, Congenital Anomaly, Other)
  Sender: MYLAN
  Company Number: GB-MYLANLABS-2020M1053246

PATIENT
  Age: 56 Year
  Sex: Male
  Weight: 92 kg

DRUGS (436)
  1. CLOZARIL [Interacting]
     Active Substance: CLOZAPINE
     Indication: Schizophrenia
  2. CLOZARIL [Interacting]
     Active Substance: CLOZAPINE
  3. CLOZARIL [Interacting]
     Active Substance: CLOZAPINE
     Route: 048
  4. CLOZARIL [Interacting]
     Active Substance: CLOZAPINE
     Route: 048
  5. CLOZARIL [Interacting]
     Active Substance: CLOZAPINE
     Route: 048
  6. CLOZARIL [Interacting]
     Active Substance: CLOZAPINE
     Route: 048
  7. CLOZARIL [Interacting]
     Active Substance: CLOZAPINE
  8. CLOZARIL [Interacting]
     Active Substance: CLOZAPINE
  9. CLOZARIL [Interacting]
     Active Substance: CLOZAPINE
     Dosage: 8 MILLIGRAM, QD/21-MAY-2020
     Dates: end: 202005
  10. CLOZARIL [Interacting]
     Active Substance: CLOZAPINE
     Dosage: 8 MILLIGRAM, QD/21-MAY-2020
     Route: 048
     Dates: end: 202005
  11. CLOZARIL [Interacting]
     Active Substance: CLOZAPINE
     Dosage: 8 MILLIGRAM, QD/21-MAY-2020
     Dates: end: 202005
  12. CLOZARIL [Interacting]
     Active Substance: CLOZAPINE
     Dosage: 8 MILLIGRAM, QD/21-MAY-2020
     Route: 048
     Dates: end: 202005
  13. CLOZARIL [Interacting]
     Active Substance: CLOZAPINE
  14. CLOZARIL [Interacting]
     Active Substance: CLOZAPINE
  15. CLOZARIL [Interacting]
     Active Substance: CLOZAPINE
     Route: 048
  16. CLOZARIL [Interacting]
     Active Substance: CLOZAPINE
     Route: 048
  17. CLOZARIL [Interacting]
     Active Substance: CLOZAPINE
     Route: 048
  18. CLOZARIL [Interacting]
     Active Substance: CLOZAPINE
     Route: 048
  19. CLOZARIL [Interacting]
     Active Substance: CLOZAPINE
  20. CLOZARIL [Interacting]
     Active Substance: CLOZAPINE
  21. CLOZARIL [Interacting]
     Active Substance: CLOZAPINE
     Dosage: 8 MILLIGRAM, QD/21-MAY-2020
     Route: 048
     Dates: end: 202005
  22. CLOZARIL [Interacting]
     Active Substance: CLOZAPINE
     Dosage: 8 MILLIGRAM, QD/21-MAY-2020
     Dates: end: 202005
  23. CLOZARIL [Interacting]
     Active Substance: CLOZAPINE
     Dosage: 8 MILLIGRAM, QD/21-MAY-2020
     Dates: end: 202005
  24. CLOZARIL [Interacting]
     Active Substance: CLOZAPINE
     Dosage: 8 MILLIGRAM, QD/21-MAY-2020
     Route: 048
     Dates: end: 202005
  25. CLOZARIL [Interacting]
     Active Substance: CLOZAPINE
     Dosage: 20 MILLIGRAM, BID (20 MG, BID)
  26. CLOZARIL [Interacting]
     Active Substance: CLOZAPINE
     Dosage: 20 MILLIGRAM, BID (20 MG, BID)
  27. CLOZARIL [Interacting]
     Active Substance: CLOZAPINE
     Dosage: 20 MILLIGRAM, BID (20 MG, BID)
     Route: 048
  28. CLOZARIL [Interacting]
     Active Substance: CLOZAPINE
     Dosage: 20 MILLIGRAM, BID (20 MG, BID)
     Route: 048
  29. CLOZARIL [Interacting]
     Active Substance: CLOZAPINE
     Dosage: 40 MILLIGRAM, QD
  30. CLOZARIL [Interacting]
     Active Substance: CLOZAPINE
     Dosage: 40 MILLIGRAM, QD
  31. CLOZARIL [Interacting]
     Active Substance: CLOZAPINE
     Dosage: 40 MILLIGRAM, QD
     Route: 048
  32. CLOZARIL [Interacting]
     Active Substance: CLOZAPINE
     Dosage: 40 MILLIGRAM, QD
     Route: 048
  33. CLOZARIL [Interacting]
     Active Substance: CLOZAPINE
     Dosage: 8 MILLIGRAM, QD (MAY-2020 00:00)
  34. CLOZARIL [Interacting]
     Active Substance: CLOZAPINE
     Dosage: 8 MILLIGRAM, QD (MAY-2020 00:00)
  35. CLOZARIL [Interacting]
     Active Substance: CLOZAPINE
     Dosage: 8 MILLIGRAM, QD (MAY-2020 00:00)
     Route: 048
  36. CLOZARIL [Interacting]
     Active Substance: CLOZAPINE
     Dosage: 8 MILLIGRAM, QD (MAY-2020 00:00)
     Route: 048
  37. CLOZARIL [Interacting]
     Active Substance: CLOZAPINE
     Route: 048
  38. CLOZARIL [Interacting]
     Active Substance: CLOZAPINE
     Route: 048
  39. CLOZARIL [Interacting]
     Active Substance: CLOZAPINE
  40. CLOZARIL [Interacting]
     Active Substance: CLOZAPINE
  41. CLOZARIL [Interacting]
     Active Substance: CLOZAPINE
     Dosage: 2 MILLIGRAM, QD (2 MG, ONCE A DAY)
     Dates: start: 202005, end: 20200528
  42. CLOZARIL [Interacting]
     Active Substance: CLOZAPINE
     Dosage: 2 MILLIGRAM, QD (2 MG, ONCE A DAY)
     Dates: start: 202005, end: 20200528
  43. CLOZARIL [Interacting]
     Active Substance: CLOZAPINE
     Dosage: 2 MILLIGRAM, QD (2 MG, ONCE A DAY)
     Route: 048
     Dates: start: 202005, end: 20200528
  44. CLOZARIL [Interacting]
     Active Substance: CLOZAPINE
     Dosage: 2 MILLIGRAM, QD (2 MG, ONCE A DAY)
     Route: 048
     Dates: start: 202005, end: 20200528
  45. OMEPRAZOLE [Interacting]
     Active Substance: OMEPRAZOLE
     Indication: Abdominal discomfort
     Dosage: 40 MILLIGRAM, QD, (20 MG, BID)
  46. OMEPRAZOLE [Interacting]
     Active Substance: OMEPRAZOLE
     Dosage: 40 MILLIGRAM, QD, (20 MG, BID)
     Route: 048
  47. OMEPRAZOLE [Interacting]
     Active Substance: OMEPRAZOLE
     Dosage: 40 MILLIGRAM, QD, (20 MG, BID)
     Route: 048
  48. OMEPRAZOLE [Interacting]
     Active Substance: OMEPRAZOLE
     Dosage: 40 MILLIGRAM, QD, (20 MG, BID)
  49. OMEPRAZOLE [Interacting]
     Active Substance: OMEPRAZOLE
     Dosage: 40 MILLIGRAM, QD, (20 MG, Q12H (20 MG, BID)
     Route: 048
  50. OMEPRAZOLE [Interacting]
     Active Substance: OMEPRAZOLE
     Dosage: 40 MILLIGRAM, QD, (20 MG, Q12H (20 MG, BID)
     Route: 048
  51. OMEPRAZOLE [Interacting]
     Active Substance: OMEPRAZOLE
     Dosage: 40 MILLIGRAM, QD, (20 MG, Q12H (20 MG, BID)
  52. OMEPRAZOLE [Interacting]
     Active Substance: OMEPRAZOLE
     Dosage: 40 MILLIGRAM, QD, (20 MG, Q12H (20 MG, BID)
  53. OMEPRAZOLE [Interacting]
     Active Substance: OMEPRAZOLE
     Dosage: 40 MILLIGRAM, QD (20 MG, BID)
  54. OMEPRAZOLE [Interacting]
     Active Substance: OMEPRAZOLE
     Dosage: 40 MILLIGRAM, QD (20 MG, BID)
     Route: 048
  55. OMEPRAZOLE [Interacting]
     Active Substance: OMEPRAZOLE
     Dosage: 40 MILLIGRAM, QD (20 MG, BID)
  56. OMEPRAZOLE [Interacting]
     Active Substance: OMEPRAZOLE
     Dosage: 40 MILLIGRAM, QD (20 MG, BID)
     Route: 048
  57. OMEPRAZOLE [Interacting]
     Active Substance: OMEPRAZOLE
     Dosage: 40 MILLIGRAM, QD (20 MG, BID)
  58. OMEPRAZOLE [Interacting]
     Active Substance: OMEPRAZOLE
     Dosage: 40 MILLIGRAM, QD (20 MG, BID)
  59. OMEPRAZOLE [Interacting]
     Active Substance: OMEPRAZOLE
     Dosage: 40 MILLIGRAM, QD (20 MG, BID)
     Route: 048
  60. OMEPRAZOLE [Interacting]
     Active Substance: OMEPRAZOLE
     Dosage: 40 MILLIGRAM, QD (20 MG, BID)
     Route: 048
  61. OMEPRAZOLE [Interacting]
     Active Substance: OMEPRAZOLE
     Dosage: 40 MILLIGRAM, QD (20 MG, BID)
  62. OMEPRAZOLE [Interacting]
     Active Substance: OMEPRAZOLE
     Dosage: 40 MILLIGRAM, QD (20 MG, BID)
  63. OMEPRAZOLE [Interacting]
     Active Substance: OMEPRAZOLE
     Dosage: 40 MILLIGRAM, QD (20 MG, BID)
     Route: 048
  64. OMEPRAZOLE [Interacting]
     Active Substance: OMEPRAZOLE
     Dosage: 40 MILLIGRAM, QD (20 MG, BID)
     Route: 048
  65. OMEPRAZOLE [Interacting]
     Active Substance: OMEPRAZOLE
  66. OMEPRAZOLE [Interacting]
     Active Substance: OMEPRAZOLE
  67. OMEPRAZOLE [Interacting]
     Active Substance: OMEPRAZOLE
     Route: 048
  68. OMEPRAZOLE [Interacting]
     Active Substance: OMEPRAZOLE
     Route: 048
  69. OMEPRAZOLE [Interacting]
     Active Substance: OMEPRAZOLE
     Dosage: 40 MILLIGRAM, QD (20 MG, BID)
  70. OMEPRAZOLE [Interacting]
     Active Substance: OMEPRAZOLE
     Dosage: 40 MILLIGRAM, QD (20 MG, BID)
  71. OMEPRAZOLE [Interacting]
     Active Substance: OMEPRAZOLE
     Dosage: 40 MILLIGRAM, QD (20 MG, BID)
     Route: 048
  72. OMEPRAZOLE [Interacting]
     Active Substance: OMEPRAZOLE
     Dosage: 40 MILLIGRAM, QD (20 MG, BID)
     Route: 048
  73. OMEPRAZOLE [Interacting]
     Active Substance: OMEPRAZOLE
  74. OMEPRAZOLE [Interacting]
     Active Substance: OMEPRAZOLE
  75. OMEPRAZOLE [Interacting]
     Active Substance: OMEPRAZOLE
     Route: 048
  76. OMEPRAZOLE [Interacting]
     Active Substance: OMEPRAZOLE
     Route: 048
  77. OMEPRAZOLE [Interacting]
     Active Substance: OMEPRAZOLE
     Dosage: 12 MG, BID
  78. OMEPRAZOLE [Interacting]
     Active Substance: OMEPRAZOLE
     Dosage: 12 MG, BID
  79. OMEPRAZOLE [Interacting]
     Active Substance: OMEPRAZOLE
     Dosage: 12 MG, BID
     Route: 048
  80. OMEPRAZOLE [Interacting]
     Active Substance: OMEPRAZOLE
     Dosage: 12 MG, BID
     Route: 048
  81. OMEPRAZOLE [Interacting]
     Active Substance: OMEPRAZOLE
  82. OMEPRAZOLE [Interacting]
     Active Substance: OMEPRAZOLE
  83. OMEPRAZOLE [Interacting]
     Active Substance: OMEPRAZOLE
     Route: 048
  84. OMEPRAZOLE [Interacting]
     Active Substance: OMEPRAZOLE
     Route: 048
  85. OMEPRAZOLE [Interacting]
     Active Substance: OMEPRAZOLE
     Dosage: 400 MILLIGRAM, QD
  86. OMEPRAZOLE [Interacting]
     Active Substance: OMEPRAZOLE
     Dosage: 400 MILLIGRAM, QD
  87. OMEPRAZOLE [Interacting]
     Active Substance: OMEPRAZOLE
     Dosage: 400 MILLIGRAM, QD
     Route: 048
  88. OMEPRAZOLE [Interacting]
     Active Substance: OMEPRAZOLE
     Dosage: 400 MILLIGRAM, QD
     Route: 048
  89. OMEPRAZOLE [Interacting]
     Active Substance: OMEPRAZOLE
     Dosage: 40 MILLIGRAM, QD (20 MG, BID)
  90. OMEPRAZOLE [Interacting]
     Active Substance: OMEPRAZOLE
     Dosage: 40 MILLIGRAM, QD (20 MG, BID)
  91. OMEPRAZOLE [Interacting]
     Active Substance: OMEPRAZOLE
     Dosage: 40 MILLIGRAM, QD (20 MG, BID)
     Route: 048
  92. OMEPRAZOLE [Interacting]
     Active Substance: OMEPRAZOLE
     Dosage: 40 MILLIGRAM, QD (20 MG, BID)
     Route: 048
  93. OMEPRAZOLE [Interacting]
     Active Substance: OMEPRAZOLE
  94. OMEPRAZOLE [Interacting]
     Active Substance: OMEPRAZOLE
  95. OMEPRAZOLE [Interacting]
     Active Substance: OMEPRAZOLE
     Route: 048
  96. OMEPRAZOLE [Interacting]
     Active Substance: OMEPRAZOLE
     Route: 048
  97. OMEPRAZOLE [Interacting]
     Active Substance: OMEPRAZOLE
     Dosage: 40 MILLIGRAM, QD (20 MG, BID)
  98. OMEPRAZOLE [Interacting]
     Active Substance: OMEPRAZOLE
     Dosage: 40 MILLIGRAM, QD (20 MG, BID)
  99. OMEPRAZOLE [Interacting]
     Active Substance: OMEPRAZOLE
     Dosage: 40 MILLIGRAM, QD (20 MG, BID)
     Route: 048
  100. OMEPRAZOLE [Interacting]
     Active Substance: OMEPRAZOLE
     Dosage: 40 MILLIGRAM, QD (20 MG, BID)
     Route: 048
  101. OMEPRAZOLE [Interacting]
     Active Substance: OMEPRAZOLE
     Dosage: 40 MILLIGRAM, QD (20 MG, BID)
  102. OMEPRAZOLE [Interacting]
     Active Substance: OMEPRAZOLE
     Dosage: 40 MILLIGRAM, QD (20 MG, BID)
  103. OMEPRAZOLE [Interacting]
     Active Substance: OMEPRAZOLE
     Dosage: 40 MILLIGRAM, QD (20 MG, BID)
     Route: 048
  104. OMEPRAZOLE [Interacting]
     Active Substance: OMEPRAZOLE
     Dosage: 40 MILLIGRAM, QD (20 MG, BID)
     Route: 048
  105. OMEPRAZOLE [Interacting]
     Active Substance: OMEPRAZOLE
  106. OMEPRAZOLE [Interacting]
     Active Substance: OMEPRAZOLE
  107. OMEPRAZOLE [Interacting]
     Active Substance: OMEPRAZOLE
     Route: 048
  108. OMEPRAZOLE [Interacting]
     Active Substance: OMEPRAZOLE
     Route: 048
  109. OMEPRAZOLE [Interacting]
     Active Substance: OMEPRAZOLE
     Dosage: (12 MG, BID) CUTANEOUS FOAM
  110. OMEPRAZOLE [Interacting]
     Active Substance: OMEPRAZOLE
     Dosage: (12 MG, BID) CUTANEOUS FOAM
  111. OMEPRAZOLE [Interacting]
     Active Substance: OMEPRAZOLE
     Dosage: (12 MG, BID) CUTANEOUS FOAM
     Route: 048
  112. OMEPRAZOLE [Interacting]
     Active Substance: OMEPRAZOLE
     Dosage: (12 MG, BID) CUTANEOUS FOAM
     Route: 048
  113. OMEPRAZOLE [Interacting]
     Active Substance: OMEPRAZOLE
     Dosage: 400 MICROGRAM, BID
  114. OMEPRAZOLE [Interacting]
     Active Substance: OMEPRAZOLE
     Dosage: 400 MICROGRAM, BID
  115. OMEPRAZOLE [Interacting]
     Active Substance: OMEPRAZOLE
     Dosage: 400 MICROGRAM, BID
     Route: 048
  116. OMEPRAZOLE [Interacting]
     Active Substance: OMEPRAZOLE
     Dosage: 400 MICROGRAM, BID
     Route: 048
  117. OMEPRAZOLE [Interacting]
     Active Substance: OMEPRAZOLE
     Dosage: 400 MICROGRAM, BID
  118. OMEPRAZOLE [Interacting]
     Active Substance: OMEPRAZOLE
     Dosage: 400 MICROGRAM, BID
  119. OMEPRAZOLE [Interacting]
     Active Substance: OMEPRAZOLE
     Dosage: 400 MICROGRAM, BID
     Route: 048
  120. OMEPRAZOLE [Interacting]
     Active Substance: OMEPRAZOLE
     Dosage: 400 MICROGRAM, BID
     Route: 048
  121. OMEPRAZOLE [Interacting]
     Active Substance: OMEPRAZOLE
     Dosage: 20 MILLIGRAM, QD
  122. OMEPRAZOLE [Interacting]
     Active Substance: OMEPRAZOLE
     Dosage: 20 MILLIGRAM, QD
  123. OMEPRAZOLE [Interacting]
     Active Substance: OMEPRAZOLE
     Dosage: 20 MILLIGRAM, QD
     Route: 048
  124. OMEPRAZOLE [Interacting]
     Active Substance: OMEPRAZOLE
     Dosage: 20 MILLIGRAM, QD
     Route: 048
  125. OMEPRAZOLE [Interacting]
     Active Substance: OMEPRAZOLE
  126. OMEPRAZOLE [Interacting]
     Active Substance: OMEPRAZOLE
  127. OMEPRAZOLE [Interacting]
     Active Substance: OMEPRAZOLE
     Route: 048
  128. OMEPRAZOLE [Interacting]
     Active Substance: OMEPRAZOLE
     Route: 048
  129. SIMVASTATIN [Interacting]
     Active Substance: SIMVASTATIN
     Indication: Product used for unknown indication
  130. SIMVASTATIN [Interacting]
     Active Substance: SIMVASTATIN
  131. SIMVASTATIN [Interacting]
     Active Substance: SIMVASTATIN
     Route: 048
  132. SIMVASTATIN [Interacting]
     Active Substance: SIMVASTATIN
     Route: 048
  133. SIMVASTATIN [Interacting]
     Active Substance: SIMVASTATIN
     Route: 048
  134. SIMVASTATIN [Interacting]
     Active Substance: SIMVASTATIN
     Route: 048
  135. SIMVASTATIN [Interacting]
     Active Substance: SIMVASTATIN
  136. SIMVASTATIN [Interacting]
     Active Substance: SIMVASTATIN
  137. SIMVASTATIN [Interacting]
     Active Substance: SIMVASTATIN
  138. SIMVASTATIN [Interacting]
     Active Substance: SIMVASTATIN
  139. SIMVASTATIN [Interacting]
     Active Substance: SIMVASTATIN
     Route: 048
  140. SIMVASTATIN [Interacting]
     Active Substance: SIMVASTATIN
     Route: 048
  141. SIMVASTATIN [Interacting]
     Active Substance: SIMVASTATIN
     Route: 065
  142. SIMVASTATIN [Interacting]
     Active Substance: SIMVASTATIN
     Route: 065
  143. SIMVASTATIN [Interacting]
     Active Substance: SIMVASTATIN
  144. SIMVASTATIN [Interacting]
     Active Substance: SIMVASTATIN
  145. TAMSULOSIN [Interacting]
     Active Substance: TAMSULOSIN
     Indication: Product used for unknown indication
  146. TAMSULOSIN [Interacting]
     Active Substance: TAMSULOSIN
  147. TAMSULOSIN [Interacting]
     Active Substance: TAMSULOSIN
     Route: 065
  148. TAMSULOSIN [Interacting]
     Active Substance: TAMSULOSIN
     Route: 065
  149. TAMSULOSIN [Interacting]
     Active Substance: TAMSULOSIN
  150. TAMSULOSIN [Interacting]
     Active Substance: TAMSULOSIN
  151. TAMSULOSIN [Interacting]
     Active Substance: TAMSULOSIN
     Route: 065
  152. TAMSULOSIN [Interacting]
     Active Substance: TAMSULOSIN
     Route: 065
  153. VENLAFAXINE [Interacting]
     Active Substance: VENLAFAXINE HYDROCHLORIDE
     Indication: Rheumatoid arthritis
  154. VENLAFAXINE [Interacting]
     Active Substance: VENLAFAXINE HYDROCHLORIDE
  155. VENLAFAXINE [Interacting]
     Active Substance: VENLAFAXINE HYDROCHLORIDE
     Route: 065
  156. VENLAFAXINE [Interacting]
     Active Substance: VENLAFAXINE HYDROCHLORIDE
     Route: 065
  157. VENLAFAXINE [Interacting]
     Active Substance: VENLAFAXINE HYDROCHLORIDE
     Dosage: 225 MILLIGRAM, QD, PROLONGED RELEASE
  158. VENLAFAXINE [Interacting]
     Active Substance: VENLAFAXINE HYDROCHLORIDE
     Dosage: 225 MILLIGRAM, QD, PROLONGED RELEASE
  159. VENLAFAXINE [Interacting]
     Active Substance: VENLAFAXINE HYDROCHLORIDE
     Dosage: 225 MILLIGRAM, QD, PROLONGED RELEASE
     Route: 065
  160. VENLAFAXINE [Interacting]
     Active Substance: VENLAFAXINE HYDROCHLORIDE
     Dosage: 225 MILLIGRAM, QD, PROLONGED RELEASE
     Route: 065
  161. OMEPRAZOLE [Interacting]
     Active Substance: OMEPRAZOLE
     Indication: Abdominal discomfort
     Dosage: 24 MILLIGRAM, QD (12 MG, BID)
     Route: 048
  162. OMEPRAZOLE [Interacting]
     Active Substance: OMEPRAZOLE
     Dosage: 24 MILLIGRAM, QD (12 MG, BID)
  163. OMEPRAZOLE [Interacting]
     Active Substance: OMEPRAZOLE
     Dosage: 24 MILLIGRAM, QD (12 MG, BID)
  164. OMEPRAZOLE [Interacting]
     Active Substance: OMEPRAZOLE
     Dosage: 24 MILLIGRAM, QD (12 MG, BID)
     Route: 048
  165. OMEPRAZOLE [Interacting]
     Active Substance: OMEPRAZOLE
     Route: 065
  166. OMEPRAZOLE [Interacting]
     Active Substance: OMEPRAZOLE
  167. OMEPRAZOLE [Interacting]
     Active Substance: OMEPRAZOLE
  168. OMEPRAZOLE [Interacting]
     Active Substance: OMEPRAZOLE
     Route: 065
  169. OMEPRAZOLE [Interacting]
     Active Substance: OMEPRAZOLE
     Dosage: 20 MG, BID (20 MG, Q12H (20 MG, BID)
  170. OMEPRAZOLE [Interacting]
     Active Substance: OMEPRAZOLE
     Dosage: 20 MG, BID (20 MG, Q12H (20 MG, BID)
  171. OMEPRAZOLE [Interacting]
     Active Substance: OMEPRAZOLE
     Dosage: 20 MG, BID (20 MG, Q12H (20 MG, BID)
     Route: 048
  172. OMEPRAZOLE [Interacting]
     Active Substance: OMEPRAZOLE
     Dosage: 20 MG, BID (20 MG, Q12H (20 MG, BID)
     Route: 048
  173. OMEPRAZOLE [Interacting]
     Active Substance: OMEPRAZOLE
     Dosage: 12 MG, BID
  174. OMEPRAZOLE [Interacting]
     Active Substance: OMEPRAZOLE
     Dosage: 12 MG, BID
  175. OMEPRAZOLE [Interacting]
     Active Substance: OMEPRAZOLE
     Dosage: 12 MG, BID
     Route: 048
  176. OMEPRAZOLE [Interacting]
     Active Substance: OMEPRAZOLE
     Dosage: 12 MG, BID
     Route: 048
  177. ZINC OXIDE [Interacting]
     Active Substance: ZINC OXIDE
     Indication: Product used for unknown indication
     Dosage: 750 MILLIGRAM, QD
     Route: 065
  178. ZINC OXIDE [Interacting]
     Active Substance: ZINC OXIDE
     Dosage: 750 MILLIGRAM, QD
  179. ZINC OXIDE [Interacting]
     Active Substance: ZINC OXIDE
     Dosage: 750 MILLIGRAM, QD
  180. ZINC OXIDE [Interacting]
     Active Substance: ZINC OXIDE
     Dosage: 750 MILLIGRAM, QD
     Route: 065
  181. ZINC OXIDE [Interacting]
     Active Substance: ZINC OXIDE
     Route: 065
  182. ZINC OXIDE [Interacting]
     Active Substance: ZINC OXIDE
  183. ZINC OXIDE [Interacting]
     Active Substance: ZINC OXIDE
  184. ZINC OXIDE [Interacting]
     Active Substance: ZINC OXIDE
     Route: 065
  185. VENLAFAXINE [Interacting]
     Active Substance: VENLAFAXINE HYDROCHLORIDE
     Indication: Depression
  186. VENLAFAXINE [Interacting]
     Active Substance: VENLAFAXINE HYDROCHLORIDE
     Indication: Rheumatoid arthritis
  187. VENLAFAXINE [Interacting]
     Active Substance: VENLAFAXINE HYDROCHLORIDE
     Route: 065
  188. VENLAFAXINE [Interacting]
     Active Substance: VENLAFAXINE HYDROCHLORIDE
     Route: 065
  189. VENLAFAXINE [Interacting]
     Active Substance: VENLAFAXINE HYDROCHLORIDE
     Dosage: 2250 MILLIGRAM, QD
  190. VENLAFAXINE [Interacting]
     Active Substance: VENLAFAXINE HYDROCHLORIDE
     Dosage: 2250 MILLIGRAM, QD
  191. VENLAFAXINE [Interacting]
     Active Substance: VENLAFAXINE HYDROCHLORIDE
     Dosage: 2250 MILLIGRAM, QD
     Route: 065
  192. VENLAFAXINE [Interacting]
     Active Substance: VENLAFAXINE HYDROCHLORIDE
     Dosage: 2250 MILLIGRAM, QD
     Route: 065
  193. VENLAFAXINE [Interacting]
     Active Substance: VENLAFAXINE HYDROCHLORIDE
     Indication: Depression
  194. VENLAFAXINE [Interacting]
     Active Substance: VENLAFAXINE HYDROCHLORIDE
     Route: 065
  195. VENLAFAXINE [Interacting]
     Active Substance: VENLAFAXINE HYDROCHLORIDE
     Route: 065
  196. VENLAFAXINE [Interacting]
     Active Substance: VENLAFAXINE HYDROCHLORIDE
  197. FOLIC ACID [Interacting]
     Active Substance: FOLIC ACID
     Indication: Product used for unknown indication
     Dosage: 5 MILLIGRAM (5 MG (ORAL SOLUTION)   )
     Route: 048
  198. FOLIC ACID [Interacting]
     Active Substance: FOLIC ACID
     Dosage: 5 MILLIGRAM (5 MG (ORAL SOLUTION)   )
  199. FOLIC ACID [Interacting]
     Active Substance: FOLIC ACID
     Dosage: 5 MILLIGRAM, ONCE A DAY (5 MG ORAL SOLUTION)
  200. FOLIC ACID [Interacting]
     Active Substance: FOLIC ACID
     Dosage: 5 MILLIGRAM, ONCE A DAY (5 MG ORAL SOLUTION)
     Route: 048
  201. FOLIC ACID [Interacting]
     Active Substance: FOLIC ACID
  202. FOLIC ACID [Interacting]
     Active Substance: FOLIC ACID
     Route: 048
  203. FOLIC ACID [Interacting]
     Active Substance: FOLIC ACID
     Dosage: 5 MILLIGRAM QD (ORAL SOLUTION)
  204. FOLIC ACID [Interacting]
     Active Substance: FOLIC ACID
     Dosage: 5 MILLIGRAM QD (ORAL SOLUTION)
     Route: 048
  205. DEXAMETHASONE [Interacting]
     Active Substance: DEXAMETHASONE
     Indication: Radiotherapy
     Dosage: 8 MILLIGRAM, QD
     Dates: end: 20200528
  206. DEXAMETHASONE [Interacting]
     Active Substance: DEXAMETHASONE
     Indication: Radiotherapy to pharynx
     Dosage: 8 MILLIGRAM, QD
     Dates: end: 20200528
  207. DEXAMETHASONE [Interacting]
     Active Substance: DEXAMETHASONE
     Indication: Abdominal discomfort
     Dosage: 8 MILLIGRAM, QD
     Route: 048
     Dates: end: 20200528
  208. DEXAMETHASONE [Interacting]
     Active Substance: DEXAMETHASONE
     Dosage: 8 MILLIGRAM, QD
     Route: 048
     Dates: end: 20200528
  209. DEXAMETHASONE [Interacting]
     Active Substance: DEXAMETHASONE
     Dosage: 2 MILLIGRAM, QD/21-MAY-2020
     Dates: end: 20200528
  210. DEXAMETHASONE [Interacting]
     Active Substance: DEXAMETHASONE
     Dosage: 2 MILLIGRAM, QD/21-MAY-2020
     Dates: end: 20200528
  211. DEXAMETHASONE [Interacting]
     Active Substance: DEXAMETHASONE
     Dosage: 2 MILLIGRAM, QD/21-MAY-2020
     Route: 048
     Dates: end: 20200528
  212. DEXAMETHASONE [Interacting]
     Active Substance: DEXAMETHASONE
     Dosage: 2 MILLIGRAM, QD/21-MAY-2020
     Route: 048
     Dates: end: 20200528
  213. DEXAMETHASONE [Interacting]
     Active Substance: DEXAMETHASONE
  214. DEXAMETHASONE [Interacting]
     Active Substance: DEXAMETHASONE
  215. DEXAMETHASONE [Interacting]
     Active Substance: DEXAMETHASONE
     Route: 048
  216. DEXAMETHASONE [Interacting]
     Active Substance: DEXAMETHASONE
     Route: 048
  217. DEXAMETHASONE [Interacting]
     Active Substance: DEXAMETHASONE
     Dosage: 8 MILLIGRAM, QD/15-MAY-2020 END DATE -MAY-2020
  218. DEXAMETHASONE [Interacting]
     Active Substance: DEXAMETHASONE
     Dosage: 8 MILLIGRAM, QD/15-MAY-2020 END DATE -MAY-2020
  219. DEXAMETHASONE [Interacting]
     Active Substance: DEXAMETHASONE
     Dosage: 8 MILLIGRAM, QD/15-MAY-2020 END DATE -MAY-2020
     Route: 048
  220. DEXAMETHASONE [Interacting]
     Active Substance: DEXAMETHASONE
     Dosage: 8 MILLIGRAM, QD/15-MAY-2020 END DATE -MAY-2020
     Route: 048
  221. DEXAMETHASONE [Interacting]
     Active Substance: DEXAMETHASONE
     Dosage: 2 MILLIGRAM, QD/MAY-2020
     Dates: end: 20200528
  222. DEXAMETHASONE [Interacting]
     Active Substance: DEXAMETHASONE
     Dosage: 2 MILLIGRAM, QD/MAY-2020
     Dates: end: 20200528
  223. DEXAMETHASONE [Interacting]
     Active Substance: DEXAMETHASONE
     Dosage: 2 MILLIGRAM, QD/MAY-2020
     Route: 048
     Dates: end: 20200528
  224. DEXAMETHASONE [Interacting]
     Active Substance: DEXAMETHASONE
     Dosage: 2 MILLIGRAM, QD/MAY-2020
     Route: 048
     Dates: end: 20200528
  225. DEXAMETHASONE [Interacting]
     Active Substance: DEXAMETHASONE
     Dosage: 8 MILLIGRAM, QD/21-MAY-2020
     Dates: end: 20200528
  226. DEXAMETHASONE [Interacting]
     Active Substance: DEXAMETHASONE
     Dosage: 8 MILLIGRAM, QD/21-MAY-2020
     Dates: end: 20200528
  227. DEXAMETHASONE [Interacting]
     Active Substance: DEXAMETHASONE
     Dosage: 8 MILLIGRAM, QD/21-MAY-2020
     Route: 048
     Dates: end: 20200528
  228. DEXAMETHASONE [Interacting]
     Active Substance: DEXAMETHASONE
     Dosage: 8 MILLIGRAM, QD/21-MAY-2020
     Route: 048
     Dates: end: 20200528
  229. DEXAMETHASONE [Interacting]
     Active Substance: DEXAMETHASONE
     Dosage: 21-MAY-2020 END DATE: MAY2020
  230. DEXAMETHASONE [Interacting]
     Active Substance: DEXAMETHASONE
     Dosage: 21-MAY-2020 END DATE: MAY2020
  231. DEXAMETHASONE [Interacting]
     Active Substance: DEXAMETHASONE
     Dosage: 21-MAY-2020 END DATE: MAY2020
     Route: 048
  232. DEXAMETHASONE [Interacting]
     Active Substance: DEXAMETHASONE
     Dosage: 21-MAY-2020 END DATE: MAY2020
     Route: 048
  233. DEXAMETHASONE [Interacting]
     Active Substance: DEXAMETHASONE
     Dosage: 8 MILLIGRAM, QD
  234. DEXAMETHASONE [Interacting]
     Active Substance: DEXAMETHASONE
     Dosage: 8 MILLIGRAM, QD
  235. DEXAMETHASONE [Interacting]
     Active Substance: DEXAMETHASONE
     Dosage: 8 MILLIGRAM, QD
     Route: 048
  236. DEXAMETHASONE [Interacting]
     Active Substance: DEXAMETHASONE
     Dosage: 8 MILLIGRAM, QD
     Route: 048
  237. DEXAMETHASONE [Interacting]
     Active Substance: DEXAMETHASONE
  238. DEXAMETHASONE [Interacting]
     Active Substance: DEXAMETHASONE
  239. DEXAMETHASONE [Interacting]
     Active Substance: DEXAMETHASONE
     Route: 048
  240. DEXAMETHASONE [Interacting]
     Active Substance: DEXAMETHASONE
     Route: 048
  241. DEXAMETHASONE [Interacting]
     Active Substance: DEXAMETHASONE
     Dosage: 8 MILLIGRAM, QD / 28-MAY-2020
  242. DEXAMETHASONE [Interacting]
     Active Substance: DEXAMETHASONE
     Dosage: 8 MILLIGRAM, QD / 28-MAY-2020
  243. DEXAMETHASONE [Interacting]
     Active Substance: DEXAMETHASONE
     Dosage: 8 MILLIGRAM, QD / 28-MAY-2020
     Route: 048
  244. DEXAMETHASONE [Interacting]
     Active Substance: DEXAMETHASONE
     Dosage: 8 MILLIGRAM, QD / 28-MAY-2020
     Route: 048
  245. DEXAMETHASONE [Interacting]
     Active Substance: DEXAMETHASONE
     Dosage: 2 MILLIGRAM, QD/28-MAY-2020
  246. DEXAMETHASONE [Interacting]
     Active Substance: DEXAMETHASONE
     Dosage: 2 MILLIGRAM, QD/28-MAY-2020
  247. DEXAMETHASONE [Interacting]
     Active Substance: DEXAMETHASONE
     Dosage: 2 MILLIGRAM, QD/28-MAY-2020
     Route: 048
  248. DEXAMETHASONE [Interacting]
     Active Substance: DEXAMETHASONE
     Dosage: 2 MILLIGRAM, QD/28-MAY-2020
     Route: 048
  249. DEXAMETHASONE [Interacting]
     Active Substance: DEXAMETHASONE
  250. DEXAMETHASONE [Interacting]
     Active Substance: DEXAMETHASONE
  251. DEXAMETHASONE [Interacting]
     Active Substance: DEXAMETHASONE
     Route: 065
  252. DEXAMETHASONE [Interacting]
     Active Substance: DEXAMETHASONE
     Route: 065
  253. DEXAMETHASONE [Interacting]
     Active Substance: DEXAMETHASONE
     Dosage: 2 MILLIGRAM, QD
     Dates: end: 20200528
  254. DEXAMETHASONE [Interacting]
     Active Substance: DEXAMETHASONE
     Dosage: 2 MILLIGRAM, QD
     Dates: end: 20200528
  255. DEXAMETHASONE [Interacting]
     Active Substance: DEXAMETHASONE
     Dosage: 2 MILLIGRAM, QD
     Route: 048
     Dates: end: 20200528
  256. DEXAMETHASONE [Interacting]
     Active Substance: DEXAMETHASONE
     Dosage: 2 MILLIGRAM, QD
     Route: 048
     Dates: end: 20200528
  257. DEXAMETHASONE [Interacting]
     Active Substance: DEXAMETHASONE
     Dosage: 2 MILLIGRAM, QD (START DATE :??-MAY-2020)
     Dates: end: 20200528
  258. DEXAMETHASONE [Interacting]
     Active Substance: DEXAMETHASONE
     Dosage: 2 MILLIGRAM, QD (START DATE :??-MAY-2020)
     Dates: end: 20200528
  259. DEXAMETHASONE [Interacting]
     Active Substance: DEXAMETHASONE
     Dosage: 2 MILLIGRAM, QD (START DATE :??-MAY-2020)
     Route: 048
     Dates: end: 20200528
  260. DEXAMETHASONE [Interacting]
     Active Substance: DEXAMETHASONE
     Dosage: 2 MILLIGRAM, QD (START DATE :??-MAY-2020)
     Route: 048
     Dates: end: 20200528
  261. DEXAMETHASONE [Interacting]
     Active Substance: DEXAMETHASONE
     Dosage: 8 MILLIGRAM, QD (28-MAY-2020 )
  262. DEXAMETHASONE [Interacting]
     Active Substance: DEXAMETHASONE
     Dosage: 8 MILLIGRAM, QD (28-MAY-2020 )
  263. DEXAMETHASONE [Interacting]
     Active Substance: DEXAMETHASONE
     Dosage: 8 MILLIGRAM, QD (28-MAY-2020 )
     Route: 048
  264. DEXAMETHASONE [Interacting]
     Active Substance: DEXAMETHASONE
     Dosage: 8 MILLIGRAM, QD (28-MAY-2020 )
     Route: 048
  265. DEXAMETHASONE [Interacting]
     Active Substance: DEXAMETHASONE
  266. DEXAMETHASONE [Interacting]
     Active Substance: DEXAMETHASONE
  267. DEXAMETHASONE [Interacting]
     Active Substance: DEXAMETHASONE
     Route: 048
  268. DEXAMETHASONE [Interacting]
     Active Substance: DEXAMETHASONE
     Route: 048
  269. DEXAMETHASONE [Interacting]
     Active Substance: DEXAMETHASONE
     Dosage: 2 MILLIGRAM, QD (28-MAY-2020)
  270. DEXAMETHASONE [Interacting]
     Active Substance: DEXAMETHASONE
     Dosage: 2 MILLIGRAM, QD (28-MAY-2020)
  271. DEXAMETHASONE [Interacting]
     Active Substance: DEXAMETHASONE
     Dosage: 2 MILLIGRAM, QD (28-MAY-2020)
     Route: 048
  272. DEXAMETHASONE [Interacting]
     Active Substance: DEXAMETHASONE
     Dosage: 2 MILLIGRAM, QD (28-MAY-2020)
     Route: 048
  273. DEXAMETHASONE [Interacting]
     Active Substance: DEXAMETHASONE
     Dosage: 8 MILLIGRAM, OD (21-MAY-2020)
     Dates: end: 20200528
  274. DEXAMETHASONE [Interacting]
     Active Substance: DEXAMETHASONE
     Dosage: 8 MILLIGRAM, OD (21-MAY-2020)
     Dates: end: 20200528
  275. DEXAMETHASONE [Interacting]
     Active Substance: DEXAMETHASONE
     Dosage: 8 MILLIGRAM, OD (21-MAY-2020)
     Route: 048
     Dates: end: 20200528
  276. DEXAMETHASONE [Interacting]
     Active Substance: DEXAMETHASONE
     Dosage: 8 MILLIGRAM, OD (21-MAY-2020)
     Route: 048
     Dates: end: 20200528
  277. DEXAMETHASONE [Interacting]
     Active Substance: DEXAMETHASONE
     Dosage: 8 MILLIGRAM, OD (21-MAY-2020)
     Dates: end: 202005
  278. DEXAMETHASONE [Interacting]
     Active Substance: DEXAMETHASONE
     Dosage: 8 MILLIGRAM, OD (21-MAY-2020)
     Dates: end: 202005
  279. DEXAMETHASONE [Interacting]
     Active Substance: DEXAMETHASONE
     Dosage: 8 MILLIGRAM, OD (21-MAY-2020)
     Route: 048
     Dates: end: 202005
  280. DEXAMETHASONE [Interacting]
     Active Substance: DEXAMETHASONE
     Dosage: 8 MILLIGRAM, OD (21-MAY-2020)
     Route: 048
     Dates: end: 202005
  281. DEXAMETHASONE [Interacting]
     Active Substance: DEXAMETHASONE
     Dosage: 8 MILLIGRAM, QD (START :15-MAY-2020 )
     Dates: end: 202005
  282. DEXAMETHASONE [Interacting]
     Active Substance: DEXAMETHASONE
     Dosage: 8 MILLIGRAM, QD (START :15-MAY-2020 )
     Dates: end: 202005
  283. DEXAMETHASONE [Interacting]
     Active Substance: DEXAMETHASONE
     Dosage: 8 MILLIGRAM, QD (START :15-MAY-2020 )
     Route: 048
     Dates: end: 202005
  284. DEXAMETHASONE [Interacting]
     Active Substance: DEXAMETHASONE
     Dosage: 8 MILLIGRAM, QD (START :15-MAY-2020 )
     Route: 048
     Dates: end: 202005
  285. DEXAMETHASONE [Interacting]
     Active Substance: DEXAMETHASONE
     Dosage: 2 MILLIGRAM, OD (START DATE: 21-MAY-2020)
     Dates: end: 20200528
  286. DEXAMETHASONE [Interacting]
     Active Substance: DEXAMETHASONE
     Dosage: 2 MILLIGRAM, OD (START DATE: 21-MAY-2020)
     Dates: end: 20200528
  287. DEXAMETHASONE [Interacting]
     Active Substance: DEXAMETHASONE
     Dosage: 2 MILLIGRAM, OD (START DATE: 21-MAY-2020)
     Route: 048
     Dates: end: 20200528
  288. DEXAMETHASONE [Interacting]
     Active Substance: DEXAMETHASONE
     Dosage: 2 MILLIGRAM, OD (START DATE: 21-MAY-2020)
     Route: 048
     Dates: end: 20200528
  289. DEXAMETHASONE [Interacting]
     Active Substance: DEXAMETHASONE
  290. DEXAMETHASONE [Interacting]
     Active Substance: DEXAMETHASONE
  291. DEXAMETHASONE [Interacting]
     Active Substance: DEXAMETHASONE
     Route: 048
  292. DEXAMETHASONE [Interacting]
     Active Substance: DEXAMETHASONE
     Route: 048
  293. DEXAMETHASONE [Interacting]
     Active Substance: DEXAMETHASONE
     Dosage: 40 MILLIGRAM, QD
  294. DEXAMETHASONE [Interacting]
     Active Substance: DEXAMETHASONE
     Dosage: 40 MILLIGRAM, QD
  295. DEXAMETHASONE [Interacting]
     Active Substance: DEXAMETHASONE
     Dosage: 40 MILLIGRAM, QD
     Route: 048
  296. DEXAMETHASONE [Interacting]
     Active Substance: DEXAMETHASONE
     Dosage: 40 MILLIGRAM, QD
     Route: 048
  297. DITIOCARB [Interacting]
     Active Substance: DITIOCARB
     Indication: Abdominal discomfort
  298. DITIOCARB [Interacting]
     Active Substance: DITIOCARB
     Indication: Product used for unknown indication
  299. DITIOCARB [Interacting]
     Active Substance: DITIOCARB
     Route: 065
  300. DITIOCARB [Interacting]
     Active Substance: DITIOCARB
     Route: 065
  301. DITIOCARB [Interacting]
     Active Substance: DITIOCARB
  302. DITIOCARB [Interacting]
     Active Substance: DITIOCARB
  303. DITIOCARB [Interacting]
     Active Substance: DITIOCARB
     Route: 065
  304. DITIOCARB [Interacting]
     Active Substance: DITIOCARB
     Route: 065
  305. CARBOCYSTEINE [Interacting]
     Active Substance: CARBOCYSTEINE
     Indication: Rheumatoid arthritis
     Dosage: 750 MILLIGRAM, QD
  306. CARBOCYSTEINE [Interacting]
     Active Substance: CARBOCYSTEINE
     Indication: Product used for unknown indication
     Dosage: 750 MILLIGRAM, QD
  307. CARBOCYSTEINE [Interacting]
     Active Substance: CARBOCYSTEINE
     Dosage: 750 MILLIGRAM, QD
     Route: 065
  308. CARBOCYSTEINE [Interacting]
     Active Substance: CARBOCYSTEINE
     Dosage: 750 MILLIGRAM, QD
     Route: 065
  309. CARBOCYSTEINE [Interacting]
     Active Substance: CARBOCYSTEINE
     Dosage: 750 MILLIGRAM, ONCE A DAY
     Dates: start: 20100917
  310. CARBOCYSTEINE [Interacting]
     Active Substance: CARBOCYSTEINE
     Dosage: 750 MILLIGRAM, ONCE A DAY
     Dates: start: 20100917
  311. CARBOCYSTEINE [Interacting]
     Active Substance: CARBOCYSTEINE
     Dosage: 750 MILLIGRAM, ONCE A DAY
     Route: 065
     Dates: start: 20100917
  312. CARBOCYSTEINE [Interacting]
     Active Substance: CARBOCYSTEINE
     Dosage: 750 MILLIGRAM, ONCE A DAY
     Route: 065
     Dates: start: 20100917
  313. CIPROFLOXACIN [Interacting]
     Active Substance: CIPROFLOXACIN
     Indication: Depression
  314. CIPROFLOXACIN [Interacting]
     Active Substance: CIPROFLOXACIN
     Indication: Abdominal discomfort
  315. CIPROFLOXACIN [Interacting]
     Active Substance: CIPROFLOXACIN
     Indication: Rheumatoid arthritis
     Route: 065
  316. CIPROFLOXACIN [Interacting]
     Active Substance: CIPROFLOXACIN
     Route: 065
  317. CIPROFLOXACIN [Interacting]
     Active Substance: CIPROFLOXACIN
     Dosage: 1000 MILLIGRAM, QD
  318. CIPROFLOXACIN [Interacting]
     Active Substance: CIPROFLOXACIN
     Dosage: 1000 MILLIGRAM, QD
  319. CIPROFLOXACIN [Interacting]
     Active Substance: CIPROFLOXACIN
     Dosage: 1000 MILLIGRAM, QD
     Route: 065
  320. CIPROFLOXACIN [Interacting]
     Active Substance: CIPROFLOXACIN
     Dosage: 1000 MILLIGRAM, QD
     Route: 065
  321. CIPROFLOXACIN [Interacting]
     Active Substance: CIPROFLOXACIN
     Dosage: 1000 MILLIGRAM, QD
     Dates: start: 20100917
  322. CIPROFLOXACIN [Interacting]
     Active Substance: CIPROFLOXACIN
     Dosage: 1000 MILLIGRAM, QD
     Route: 048
     Dates: start: 20100917
  323. CIPROFLOXACIN [Interacting]
     Active Substance: CIPROFLOXACIN
     Dosage: 1000 MILLIGRAM, QD
     Dates: start: 20100917
  324. CIPROFLOXACIN [Interacting]
     Active Substance: CIPROFLOXACIN
     Dosage: 1000 MILLIGRAM, QD
     Route: 048
     Dates: start: 20100917
  325. PHYLLOCONTIN [Interacting]
     Active Substance: AMINOPHYLLINE
     Indication: Product used for unknown indication
     Dosage: 400 MG, DAILY, QD
     Dates: start: 20100917
  326. PHYLLOCONTIN [Interacting]
     Active Substance: AMINOPHYLLINE
     Dosage: 400 MG, DAILY, QD
     Route: 065
     Dates: start: 20100917
  327. PHYLLOCONTIN [Interacting]
     Active Substance: AMINOPHYLLINE
     Dosage: 400 MG, DAILY, QD
     Route: 065
     Dates: start: 20100917
  328. PHYLLOCONTIN [Interacting]
     Active Substance: AMINOPHYLLINE
     Dosage: 400 MG, DAILY, QD
     Dates: start: 20100917
  329. IRBESARTAN [Interacting]
     Active Substance: IRBESARTAN
     Indication: Abdominal discomfort
     Dosage: 150 MG, QD
     Dates: start: 20100912
  330. IRBESARTAN [Interacting]
     Active Substance: IRBESARTAN
     Indication: Abdominal discomfort
     Dosage: 150 MG, QD
     Dates: start: 20100912
  331. IRBESARTAN [Interacting]
     Active Substance: IRBESARTAN
     Indication: Abdominal discomfort
     Dosage: 150 MG, QD
     Route: 048
     Dates: start: 20100912
  332. IRBESARTAN [Interacting]
     Active Substance: IRBESARTAN
     Dosage: 150 MG, QD
     Route: 048
     Dates: start: 20100912
  333. IRBESARTAN [Interacting]
     Active Substance: IRBESARTAN
     Dosage: 150 MG, QD
     Dates: start: 20100917
  334. IRBESARTAN [Interacting]
     Active Substance: IRBESARTAN
     Dosage: 150 MG, QD
     Dates: start: 20100917
  335. IRBESARTAN [Interacting]
     Active Substance: IRBESARTAN
     Dosage: 150 MG, QD
     Route: 048
     Dates: start: 20100917
  336. IRBESARTAN [Interacting]
     Active Substance: IRBESARTAN
     Dosage: 150 MG, QD
     Route: 048
     Dates: start: 20100917
  337. CARBAMAZEPINE [Interacting]
     Active Substance: CARBAMAZEPINE
     Indication: Product used for unknown indication
     Dosage: 750 MILLIGRAM, QD
  338. CARBAMAZEPINE [Interacting]
     Active Substance: CARBAMAZEPINE
     Dosage: 750 MILLIGRAM, QD
  339. CARBAMAZEPINE [Interacting]
     Active Substance: CARBAMAZEPINE
     Dosage: 750 MILLIGRAM, QD
     Route: 048
  340. CARBAMAZEPINE [Interacting]
     Active Substance: CARBAMAZEPINE
     Dosage: 750 MILLIGRAM, QD
     Route: 048
  341. CARBAMAZEPINE [Interacting]
     Active Substance: CARBAMAZEPINE
     Dosage: 750 MG, QD
  342. CARBAMAZEPINE [Interacting]
     Active Substance: CARBAMAZEPINE
     Dosage: 750 MG, QD
  343. CARBAMAZEPINE [Interacting]
     Active Substance: CARBAMAZEPINE
     Dosage: 750 MG, QD
     Route: 048
  344. CARBAMAZEPINE [Interacting]
     Active Substance: CARBAMAZEPINE
     Dosage: 750 MG, QD
     Route: 048
  345. METHOTREXATE [Interacting]
     Active Substance: METHOTREXATE
     Indication: Rheumatoid arthritis
     Dosage: (CUMULATIVE DOSE: 8710 MICROGRAM)
     Route: 048
     Dates: start: 20100917
  346. METHOTREXATE [Interacting]
     Active Substance: METHOTREXATE
     Dosage: (CUMULATIVE DOSE: 8710 MICROGRAM)
     Dates: start: 20100917
  347. METHOTREXATE [Interacting]
     Active Substance: METHOTREXATE
     Dosage: (CUMULATIVE DOSE: 8710 MICROGRAM)
     Dates: start: 20100917
  348. METHOTREXATE [Interacting]
     Active Substance: METHOTREXATE
     Dosage: (CUMULATIVE DOSE: 8710 MICROGRAM)
     Route: 048
     Dates: start: 20100917
  349. METHOTREXATE [Interacting]
     Active Substance: METHOTREXATE
     Dosage: 17.5 MILLIGRAM, QW
     Route: 048
     Dates: start: 20100917
  350. METHOTREXATE [Interacting]
     Active Substance: METHOTREXATE
     Dosage: 17.5 MILLIGRAM, QW
     Dates: start: 20100917
  351. METHOTREXATE [Interacting]
     Active Substance: METHOTREXATE
     Dosage: 17.5 MILLIGRAM, QW
     Dates: start: 20100917
  352. METHOTREXATE [Interacting]
     Active Substance: METHOTREXATE
     Dosage: 17.5 MILLIGRAM, QW
     Route: 048
     Dates: start: 20100917
  353. METHOTREXATE [Interacting]
     Active Substance: METHOTREXATE
     Dosage: 17.5 MILLIGRAM, QD
     Route: 048
     Dates: start: 20100917
  354. METHOTREXATE [Interacting]
     Active Substance: METHOTREXATE
     Dosage: 17.5 MILLIGRAM, QD
     Route: 048
     Dates: start: 20100917
  355. METHOTREXATE [Interacting]
     Active Substance: METHOTREXATE
     Dosage: 17.5 MILLIGRAM, QD
     Dates: start: 20100917
  356. METHOTREXATE [Interacting]
     Active Substance: METHOTREXATE
     Dosage: 17.5 MILLIGRAM, QD
     Dates: start: 20100917
  357. ENBREL [Interacting]
     Active Substance: ETANERCEPT
     Indication: Rheumatoid arthritis
     Dosage: 50 MILLIGRAM, Q.W., WEEKLY, SOLUTION FOR INJECTION IN PRE-FILLED PEN, MYCLIC PENS
     Dates: start: 20100917
  358. ENBREL [Interacting]
     Active Substance: ETANERCEPT
     Dosage: 50 MILLIGRAM, Q.W., WEEKLY, SOLUTION FOR INJECTION IN PRE-FILLED PEN, MYCLIC PENS
     Route: 042
     Dates: start: 20100917
  359. ENBREL [Interacting]
     Active Substance: ETANERCEPT
     Dosage: 50 MILLIGRAM, Q.W., WEEKLY, SOLUTION FOR INJECTION IN PRE-FILLED PEN, MYCLIC PENS
     Route: 042
     Dates: start: 20100917
  360. ENBREL [Interacting]
     Active Substance: ETANERCEPT
     Dosage: 50 MILLIGRAM, Q.W., WEEKLY, SOLUTION FOR INJECTION IN PRE-FILLED PEN, MYCLIC PENS
     Dates: start: 20100917
  361. GUANIDINE [Interacting]
     Active Substance: GUANIDINE
     Indication: Depression
     Dosage: 750 MILLIGRAM, QD,1,3-DIPHENYLGUANIDINE
  362. GUANIDINE [Interacting]
     Active Substance: GUANIDINE
     Indication: Abdominal discomfort
     Dosage: 750 MILLIGRAM, QD,1,3-DIPHENYLGUANIDINE
  363. GUANIDINE [Interacting]
     Active Substance: GUANIDINE
     Dosage: 750 MILLIGRAM, QD,1,3-DIPHENYLGUANIDINE
     Route: 048
  364. GUANIDINE [Interacting]
     Active Substance: GUANIDINE
     Dosage: 750 MILLIGRAM, QD,1,3-DIPHENYLGUANIDINE
     Route: 048
  365. GUANIDINE [Interacting]
     Active Substance: GUANIDINE
     Dosage: 750 MILLIGRAM, ONCE A DAY
  366. GUANIDINE [Interacting]
     Active Substance: GUANIDINE
     Dosage: 750 MILLIGRAM, ONCE A DAY
  367. GUANIDINE [Interacting]
     Active Substance: GUANIDINE
     Dosage: 750 MILLIGRAM, ONCE A DAY
     Route: 048
  368. GUANIDINE [Interacting]
     Active Substance: GUANIDINE
     Dosage: 750 MILLIGRAM, ONCE A DAY
     Route: 048
  369. SULFAGUANIDINE [Interacting]
     Active Substance: SULFAGUANIDINE
     Indication: Product used for unknown indication
  370. SULFAGUANIDINE [Interacting]
     Active Substance: SULFAGUANIDINE
  371. SULFAGUANIDINE [Interacting]
     Active Substance: SULFAGUANIDINE
     Route: 048
  372. SULFAGUANIDINE [Interacting]
     Active Substance: SULFAGUANIDINE
     Route: 048
  373. SULFAGUANIDINE [Interacting]
     Active Substance: SULFAGUANIDINE
  374. SULFAGUANIDINE [Interacting]
     Active Substance: SULFAGUANIDINE
  375. SULFAGUANIDINE [Interacting]
     Active Substance: SULFAGUANIDINE
     Route: 048
  376. SULFAGUANIDINE [Interacting]
     Active Substance: SULFAGUANIDINE
     Route: 048
  377. CIPROFLOXACIN [Interacting]
     Active Substance: CIPROFLOXACIN
     Indication: Abdominal discomfort
     Dosage: 1000 MG, QD
     Dates: start: 20100917
  378. CIPROFLOXACIN [Interacting]
     Active Substance: CIPROFLOXACIN
     Indication: Rheumatoid arthritis
     Dosage: 1000 MG, QD
     Route: 048
     Dates: start: 20100917
  379. CIPROFLOXACIN [Interacting]
     Active Substance: CIPROFLOXACIN
     Indication: Product used for unknown indication
     Dosage: 1000 MG, QD
     Route: 048
     Dates: start: 20100917
  380. CIPROFLOXACIN [Interacting]
     Active Substance: CIPROFLOXACIN
     Dosage: 1000 MG, QD
     Dates: start: 20100917
  381. BENDROFLUMETHIAZIDE [Concomitant]
     Active Substance: BENDROFLUMETHIAZIDE
     Indication: Pituitary tumour
  382. BENDROFLUMETHIAZIDE [Concomitant]
     Active Substance: BENDROFLUMETHIAZIDE
     Indication: Depression
     Route: 065
  383. BENDROFLUMETHIAZIDE [Concomitant]
     Active Substance: BENDROFLUMETHIAZIDE
     Route: 065
  384. BENDROFLUMETHIAZIDE [Concomitant]
     Active Substance: BENDROFLUMETHIAZIDE
  385. CABERGOLINE [Concomitant]
     Active Substance: CABERGOLINE
     Indication: Empty sella syndrome
  386. CABERGOLINE [Concomitant]
     Active Substance: CABERGOLINE
     Indication: Pituitary tumour
  387. CABERGOLINE [Concomitant]
     Active Substance: CABERGOLINE
     Route: 065
  388. CABERGOLINE [Concomitant]
     Active Substance: CABERGOLINE
     Route: 065
  389. CABERGOLINE [Concomitant]
     Active Substance: CABERGOLINE
  390. CABERGOLINE [Concomitant]
     Active Substance: CABERGOLINE
  391. CABERGOLINE [Concomitant]
     Active Substance: CABERGOLINE
     Route: 065
  392. CABERGOLINE [Concomitant]
     Active Substance: CABERGOLINE
     Route: 065
  393. CETIRIZINE [Concomitant]
     Active Substance: CETIRIZINE HYDROCHLORIDE
     Indication: Abdominal discomfort
  394. CETIRIZINE [Concomitant]
     Active Substance: CETIRIZINE HYDROCHLORIDE
  395. CETIRIZINE [Concomitant]
     Active Substance: CETIRIZINE HYDROCHLORIDE
     Route: 065
  396. CETIRIZINE [Concomitant]
     Active Substance: CETIRIZINE HYDROCHLORIDE
     Route: 065
  397. CETIRIZINE [Concomitant]
     Active Substance: CETIRIZINE HYDROCHLORIDE
  398. CETIRIZINE [Concomitant]
     Active Substance: CETIRIZINE HYDROCHLORIDE
  399. CETIRIZINE [Concomitant]
     Active Substance: CETIRIZINE HYDROCHLORIDE
     Route: 065
  400. CETIRIZINE [Concomitant]
     Active Substance: CETIRIZINE HYDROCHLORIDE
     Route: 065
  401. EZETIMIBE [Concomitant]
     Active Substance: EZETIMIBE
     Indication: Product used for unknown indication
  402. EZETIMIBE [Concomitant]
     Active Substance: EZETIMIBE
  403. EZETIMIBE [Concomitant]
     Active Substance: EZETIMIBE
     Route: 065
  404. EZETIMIBE [Concomitant]
     Active Substance: EZETIMIBE
     Route: 065
  405. EZETIMIBE [Concomitant]
     Active Substance: EZETIMIBE
  406. EZETIMIBE [Concomitant]
     Active Substance: EZETIMIBE
  407. EZETIMIBE [Concomitant]
     Active Substance: EZETIMIBE
     Route: 065
  408. EZETIMIBE [Concomitant]
     Active Substance: EZETIMIBE
     Route: 065
  409. FOLIC ACID [Concomitant]
     Active Substance: FOLIC ACID
  410. FOLIC ACID [Concomitant]
     Active Substance: FOLIC ACID
     Route: 048
  411. FOLIC ACID [Concomitant]
     Active Substance: FOLIC ACID
     Route: 048
  412. FOLIC ACID [Concomitant]
     Active Substance: FOLIC ACID
  413. LEVOTHYROXINE [Concomitant]
     Active Substance: LEVOTHYROXINE
     Indication: Abdominal discomfort
  414. LEVOTHYROXINE [Concomitant]
     Active Substance: LEVOTHYROXINE
     Indication: Depression
  415. LEVOTHYROXINE [Concomitant]
     Active Substance: LEVOTHYROXINE
     Route: 065
  416. LEVOTHYROXINE [Concomitant]
     Active Substance: LEVOTHYROXINE
     Route: 065
  417. LEVOTHYROXINE [Concomitant]
     Active Substance: LEVOTHYROXINE
  418. LEVOTHYROXINE [Concomitant]
     Active Substance: LEVOTHYROXINE
  419. LEVOTHYROXINE [Concomitant]
     Active Substance: LEVOTHYROXINE
     Route: 065
  420. LEVOTHYROXINE [Concomitant]
     Active Substance: LEVOTHYROXINE
     Route: 065
  421. ORUVAIL [Concomitant]
     Active Substance: KETOPROFEN
     Indication: Empty sella syndrome
  422. ORUVAIL [Concomitant]
     Active Substance: KETOPROFEN
  423. ORUVAIL [Concomitant]
     Active Substance: KETOPROFEN
     Route: 065
  424. ORUVAIL [Concomitant]
     Active Substance: KETOPROFEN
     Route: 065
  425. ORUVAIL [Concomitant]
     Active Substance: KETOPROFEN
  426. ORUVAIL [Concomitant]
     Active Substance: KETOPROFEN
  427. ORUVAIL [Concomitant]
     Active Substance: KETOPROFEN
     Route: 065
  428. ORUVAIL [Concomitant]
     Active Substance: KETOPROFEN
     Route: 065
  429. ACTIVATED CHARCOAL [Concomitant]
     Active Substance: ACTIVATED CHARCOAL
     Indication: Product used for unknown indication
  430. ACTIVATED CHARCOAL [Concomitant]
     Active Substance: ACTIVATED CHARCOAL
  431. ACTIVATED CHARCOAL [Concomitant]
     Active Substance: ACTIVATED CHARCOAL
     Route: 065
  432. ACTIVATED CHARCOAL [Concomitant]
     Active Substance: ACTIVATED CHARCOAL
     Route: 065
  433. ACTIVATED CHARCOAL [Concomitant]
     Active Substance: ACTIVATED CHARCOAL
  434. ACTIVATED CHARCOAL [Concomitant]
     Active Substance: ACTIVATED CHARCOAL
  435. ACTIVATED CHARCOAL [Concomitant]
     Active Substance: ACTIVATED CHARCOAL
     Route: 065
  436. ACTIVATED CHARCOAL [Concomitant]
     Active Substance: ACTIVATED CHARCOAL
     Route: 065

REACTIONS (37)
  - COVID-19 [Fatal]
  - Condition aggravated [Fatal]
  - Lung neoplasm malignant [Fatal]
  - Schizophrenia [Fatal]
  - Radiation inflammation [Fatal]
  - Inflammation [Fatal]
  - Knee arthroplasty [Fatal]
  - Lower respiratory tract infection [Fatal]
  - Arthropathy [Fatal]
  - Rash [Fatal]
  - Abdominal discomfort [Fatal]
  - Pulmonary pain [Fatal]
  - Overdose [Fatal]
  - Product dose omission issue [Fatal]
  - Off label use [Fatal]
  - Intentional product misuse [Fatal]
  - Drug abuse [Fatal]
  - Dementia [Unknown]
  - Genital pain [Recovered/Resolved]
  - Blood potassium decreased [Unknown]
  - Diarrhoea [Recovered/Resolved]
  - Food poisoning [Not Recovered/Not Resolved]
  - Malaise [Unknown]
  - Feeling abnormal [Unknown]
  - Peripheral swelling [Unknown]
  - Illness [Recovering/Resolving]
  - Nightmare [Not Recovered/Not Resolved]
  - Contusion [Not Recovered/Not Resolved]
  - Genital ulceration [Recovered/Resolved]
  - Irritable bowel syndrome [Unknown]
  - Gastrointestinal pain [Not Recovered/Not Resolved]
  - Drug interaction [Unknown]
  - Mucosal inflammation [Recovered/Resolved]
  - Oral pain [Recovering/Resolving]
  - Abdominal pain upper [Recovering/Resolving]
  - Abdominal pain [Recovered/Resolved]
  - Vomiting [Unknown]

NARRATIVE: CASE EVENT DATE: 20190121
